FAERS Safety Report 4344821-2 (Version None)
Quarter: 2004Q2

REPORT INFORMATION
  Report Type: 
  Country: None (occurrence: None)
  Receive Date: 20040420
  Receipt Date: 20040408
  Transmission Date: 20050107
  Serious: Yes (Hospitalization)
  Sender: FDA-Public Use
  Company Number: US-JNJFOC-20040401891

PATIENT
  Age: 79 Year
  Sex: Male
  Weight: 78.0187 kg

DRUGS (9)
  1. INFLIXIMAB (INFLIXIMAB, RECOMBINANT) LYOPHILIZED POWDER [Suspect]
     Indication: RHEUMATOID ARTHRITIS
     Dosage: INTRAVENOUS
     Route: 042
     Dates: start: 20020221, end: 20030101
  2. PREDNISONE [Concomitant]
  3. METHOTREXATE [Concomitant]
  4. ISOSORBIDE (ISOSORBIDE) [Concomitant]
  5. AVAPRO [Concomitant]
  6. DIOVAN [Concomitant]
  7. TOPROL (METOPROLOL SUCCINATE) [Concomitant]
  8. LEVOXYL [Concomitant]
  9. XALATAN [Concomitant]

REACTIONS (9)
  - APHASIA [None]
  - ASTHENIA [None]
  - CELLULITIS [None]
  - CEREBROVASCULAR ACCIDENT [None]
  - DEPRESSED LEVEL OF CONSCIOUSNESS [None]
  - PYREXIA [None]
  - STAPHYLOCOCCAL BACTERAEMIA [None]
  - THROMBOSIS [None]
  - WHITE BLOOD CELL COUNT INCREASED [None]
